FAERS Safety Report 8764145 (Version 5)
Quarter: 2013Q3

REPORT INFORMATION
  Report Type: Report from Study
  Country: JP (occurrence: JP)
  Receive Date: 20120831
  Receipt Date: 20130822
  Transmission Date: 20140515
  Serious: Yes (Hospitalization, Other)
  Sender: FDA-Public Use
  Company Number: JP-VERTEX PHARMACEUTICAL INC.-AE-2012-005685

PATIENT
  Age: 57 Year
  Sex: Male

DRUGS (20)
  1. VX-950 (TELAPREVIR) [Suspect]
     Indication: CHRONIC HEPATITIS C
     Dosage: 2250 MG, QD
     Route: 048
     Dates: start: 20120301, end: 20120404
  2. VX-950 (TELAPREVIR) [Suspect]
     Dosage: 1500 MG, QD
     Route: 048
     Dates: start: 20120405, end: 20120510
  3. VX-950 (TELAPREVIR) [Suspect]
     Dosage: 1000 MG, QD
     Route: 048
     Dates: start: 20120511, end: 20120517
  4. VX-950 (TELAPREVIR) [Suspect]
     Dosage: 1500 MG, QD
     Route: 048
     Dates: start: 20120518, end: 20120523
  5. REBETOL [Suspect]
     Indication: CHRONIC HEPATITIS C
     Dosage: 600 MG, QD
     Route: 048
     Dates: start: 20120301, end: 20120311
  6. REBETOL [Suspect]
     Dosage: 200 MG, QD
     Route: 048
     Dates: start: 20120312, end: 20120613
  7. REBETOL [Suspect]
     Dosage: 400 MG, QD
     Route: 048
     Dates: start: 20120614, end: 20120620
  8. REBETOL [Suspect]
     Dosage: 600 MG, QD
     Route: 048
     Dates: start: 20120621, end: 20120627
  9. REBETOL [Suspect]
     Dosage: 400 MG, QD
     Route: 048
     Dates: start: 20120628, end: 20120704
  10. REBETOL [Suspect]
     Dosage: 800 MG, QD
     Route: 048
     Dates: start: 20120705, end: 20120815
  11. PEGINTRON [Suspect]
     Indication: CHRONIC HEPATITIS C
     Dosage: 1.5 ?G/KG, QW
     Route: 058
     Dates: start: 20120301, end: 20120425
  12. PEGINTRON [Suspect]
     Dosage: 1.2 ?G/KG, QW
     Route: 058
     Dates: start: 20120426, end: 20120809
  13. METGLUCO [Concomitant]
     Dosage: 750 MG, QD
     Route: 048
     Dates: start: 20120419, end: 20120530
  14. ACETAMINOPHEN [Concomitant]
     Dosage: 4.5 G, QD
     Route: 048
     Dates: start: 20120419, end: 20120502
  15. HYPEN [Concomitant]
     Dosage: 400 MG, QD
     Route: 048
     Dates: start: 20120419, end: 20120425
  16. MOHRUS L [Concomitant]
     Dosage: 40 MG, QD
     Route: 061
     Dates: start: 20120419, end: 20120509
  17. NABOAL [Concomitant]
     Dosage: UNK, PRN
     Route: 051
     Dates: start: 20120515
  18. GLACTIV [Concomitant]
     Dosage: 50 MG, QD
     Route: 048
     Dates: start: 20120614
  19. CRAVIT [Concomitant]
     Dosage: 500 MG, QD
     Route: 048
     Dates: start: 20120614, end: 20120620
  20. BAYLOTENSIN [Concomitant]
     Dosage: 5 MG, QD
     Route: 048
     Dates: start: 20120530

REACTIONS (4)
  - Gastric ulcer [Unknown]
  - Erythema multiforme [Recovered/Resolved]
  - Loss of consciousness [Recovered/Resolved]
  - Haemoglobin decreased [Recovered/Resolved]
